FAERS Safety Report 11744660 (Version 1)
Quarter: 2015Q4

REPORT INFORMATION
  Report Type: Spontaneous
  Country: US (occurrence: None)
  Receive Date: 20151116
  Receipt Date: 20151116
  Transmission Date: 20160304
  Serious: No
  Sender: FDA-Public Use
  Company Number: US-MDT-ADR-2015-02165

PATIENT

DRUGS (1)
  1. BACLOFEN UNKNOWN [Suspect]
     Active Substance: BACLOFEN

REACTIONS (5)
  - Fatigue [None]
  - Balance disorder [None]
  - Dizziness [None]
  - Depression [None]
  - Anxiety [None]
